FAERS Safety Report 7824703-1 (Version None)
Quarter: 2011Q4

REPORT INFORMATION
  Report Type: 
  Country: None (occurrence: None)
  Receive Date: 20111019
  Receipt Date: 20111013
  Transmission Date: 20120403
  Serious: Yes (Other)
  Sender: FDA-Public Use
  Company Number: PHEH2011US04700

PATIENT
  Sex: Male

DRUGS (3)
  1. ZOMETA [Suspect]
     Dosage: 3.5 MG, QMO
  2. TAXOL [Suspect]
     Indication: PROSTATE CANCER
  3. ZOMETA [Suspect]
     Dosage: 3.5 MG, QMO

REACTIONS (1)
  - OSTEONECROSIS OF JAW [None]
